FAERS Safety Report 6255440-5 (Version None)
Quarter: 2009Q3

REPORT INFORMATION
  Report Type: 
  Country: None (occurrence: None)
  Receive Date: 20090702
  Receipt Date: 20090629
  Transmission Date: 20100115
  Serious: Yes (Other)
  Sender: FDA-Public Use
  Company Number: US-ABBOTT-09P-163-0581873-00

PATIENT
  Sex: Female
  Weight: 68.1 kg

DRUGS (17)
  1. HUMIRA [Suspect]
     Indication: RHEUMATOID ARTHRITIS
     Route: 058
     Dates: start: 20050101
  2. AZMACORT [Concomitant]
     Indication: SINUSITIS
     Dates: start: 20090501
  3. AZMACORT [Concomitant]
     Indication: HYPERSENSITIVITY
  4. NASONEX [Concomitant]
     Indication: HYPERSENSITIVITY
  5. GEMFIBROZIL [Concomitant]
     Indication: DRUG USE FOR UNKNOWN INDICATION
  6. VICODIN [Concomitant]
     Indication: DRUG USE FOR UNKNOWN INDICATION
  7. METOPROLOL SUCCINATE [Concomitant]
     Indication: HYPERTENSION
  8. LISINOPRIL [Concomitant]
     Indication: DRUG USE FOR UNKNOWN INDICATION
  9. CALCIUM [Concomitant]
     Indication: DRUG USE FOR UNKNOWN INDICATION
  10. MULTI-VITAMIN [Concomitant]
     Indication: DRUG USE FOR UNKNOWN INDICATION
  11. ALBUTEROL [Concomitant]
     Indication: HYPERSENSITIVITY
     Dosage: PRN
  12. MUCINEX [Concomitant]
     Indication: SINUS DISORDER
  13. ASPIRIN [Concomitant]
     Indication: DRUG USE FOR UNKNOWN INDICATION
  14. ZOLOFT [Concomitant]
     Indication: DRUG USE FOR UNKNOWN INDICATION
  15. METFORMIN HCL [Concomitant]
     Indication: DIABETES MELLITUS
  16. ALLEGRA [Concomitant]
     Indication: DRUG USE FOR UNKNOWN INDICATION
  17. HYDROXYCHLOROQUINE SULFATE [Concomitant]
     Indication: DRUG USE FOR UNKNOWN INDICATION

REACTIONS (4)
  - DRUG DOSE OMISSION [None]
  - MALIGNANT MELANOMA [None]
  - MELANOCYTIC NAEVUS [None]
  - SINUSITIS [None]
